FAERS Safety Report 17880123 (Version 1)
Quarter: 2020Q3

REPORT INFORMATION
  Report Type: Spontaneous
  Country: US (occurrence: US)
  Receive Date: 20200610
  Receipt Date: 20200610
  Transmission Date: 20201104
  Serious: No
  Sender: FDA-Public Use
  Company Number: None

PATIENT
  Age: 99 Year
  Weight: .45 kg

DRUGS (2)
  1. EPHEDRINE. [Suspect]
     Active Substance: EPHEDRINE
  2. EPINEPHRINE (ADRENALIN) [Suspect]
     Active Substance: EPINEPHRINE

REACTIONS (2)
  - Product appearance confusion [None]
  - Product name confusion [None]

NARRATIVE: CASE EVENT DATE: 20200609
